FAERS Safety Report 10420407 (Version 1)
Quarter: 2014Q3

REPORT INFORMATION
  Report Type: Spontaneous
  Country: US (occurrence: None)
  Receive Date: 20140701
  Receipt Date: 20140701
  Transmission Date: 20150326
  Serious: No
  Sender: FDA-Public Use
  Company Number: 1000066801

PATIENT
  Age: 74 Year
  Sex: Female

DRUGS (2)
  1. LINZESS [Suspect]
     Active Substance: LINACLOTIDE
     Indication: CONSTIPATION
     Route: 048
     Dates: start: 20140417, end: 20140417
  2. LINZESS [Suspect]
     Active Substance: LINACLOTIDE
     Indication: CONSTIPATION
     Route: 048
     Dates: start: 20140423, end: 20140423

REACTIONS (5)
  - Asthenia [None]
  - Abdominal pain [None]
  - Sinus disorder [None]
  - Dizziness [None]
  - Dry mouth [None]

NARRATIVE: CASE EVENT DATE: 20140417
